FAERS Safety Report 13927123 (Version 4)
Quarter: 2017Q4

REPORT INFORMATION
  Report Type: Spontaneous
  Country: US (occurrence: US)
  Receive Date: 20170901
  Receipt Date: 20171214
  Transmission Date: 20180320
  Serious: No
  Sender: FDA-Public Use
  Company Number: US-PFIZER INC-2017376995

PATIENT
  Age: 65 Year
  Sex: Male

DRUGS (5)
  1. AMLODIPINE [Concomitant]
     Active Substance: AMLODIPINE BESYLATE
     Dosage: 10 MG, UNK
  2. LOSARTAN POTASSSIUM [Concomitant]
     Dosage: 100 MG, UNK
  3. SUTENT [Suspect]
     Active Substance: SUNITINIB MALATE
     Indication: RENAL CANCER STAGE IV
     Dosage: 50 MG, CYCLIC (50 MG DAILY FOR 2WEEKS ON / 1 WEEK OFF)
     Route: 048
     Dates: start: 20160805
  4. SUTENT [Suspect]
     Active Substance: SUNITINIB MALATE
     Dosage: 37.5 MG, CYCLIC, (EVERY DAY FOR 2 WEEKS THEN 1 WEEK OFF 21 DAY CYCLE)
     Route: 048
     Dates: start: 20170116
  5. SUTENT [Suspect]
     Active Substance: SUNITINIB MALATE
     Dosage: 37.5 MG, CYCLIC (2 WEEKS ON AND 1 WEEK OFF)
     Dates: start: 20170505

REACTIONS (4)
  - Rash [Unknown]
  - Discomfort [Unknown]
  - Diarrhoea [Recovered/Resolved]
  - Gait inability [Unknown]

NARRATIVE: CASE EVENT DATE: 2017
